FAERS Safety Report 4492728-2 (Version None)
Quarter: 2004Q4

REPORT INFORMATION
  Report Type: 
  Country: None (occurrence: None)
  Receive Date: 20041104
  Receipt Date: 20040928
  Transmission Date: 20050328
  Serious: Yes (Hospitalization)
  Sender: FDA-Public Use
  Company Number: 200419603GDDC

PATIENT
  Age: 76 Year
  Sex: Female

DRUGS (3)
  1. INDAPAMIDE [Suspect]
     Indication: HYPERTENSION
     Route: 048
     Dates: start: 20040706, end: 20040723
  2. ATENOLOL [Concomitant]
     Dates: start: 20010115
  3. NIFEDIPINE [Concomitant]
     Dates: start: 20010101

REACTIONS (2)
  - COMA [None]
  - HYPONATRAEMIA [None]
